FAERS Safety Report 11528439 (Version 1)
Quarter: 2015Q3

REPORT INFORMATION
  Report Type: Spontaneous
  Country: US (occurrence: US)
  Receive Date: 20150921
  Receipt Date: 20150921
  Transmission Date: 20151125
  Serious: No
  Sender: FDA-Public Use
  Company Number: US-TEVA-559812USA

PATIENT
  Age: 58 Year
  Sex: Female

DRUGS (1)
  1. CLONAZEPAM. [Suspect]
     Active Substance: CLONAZEPAM
     Indication: ANXIETY
     Dosage: 2 TABS, 3 TIMES A DAY
     Route: 065

REACTIONS (4)
  - Anxiety [Unknown]
  - Drug ineffective [Unknown]
  - Pollakiuria [Unknown]
  - Feeling cold [Unknown]

NARRATIVE: CASE EVENT DATE: 201504
